FAERS Safety Report 19281219 (Version 1)
Quarter: 2021Q2

REPORT INFORMATION
  Report Type: Spontaneous
  Country: CA (occurrence: CA)
  Receive Date: 20210521
  Receipt Date: 20210521
  Transmission Date: 20210717
  Serious: Yes (Other)
  Sender: FDA-Public Use
  Company Number: CA-TEVA-2021-CA-1912562

PATIENT
  Age: 17 Year
  Sex: Male

DRUGS (3)
  1. AZITHROMYCIN ANHYDROUS. [Suspect]
     Active Substance: AZITHROMYCIN ANHYDROUS
     Dosage: 250 MILLIGRAM DAILY;
     Route: 048
  2. AZITHROMYCIN ANHYDROUS. [Suspect]
     Active Substance: AZITHROMYCIN ANHYDROUS
     Indication: PHARYNGITIS STREPTOCOCCAL
     Route: 048
  3. DIPHENHYDRAMINE HYDROCHLORIDE; PARACETAMOL; PHENYLEPHRINE HYDROCHLORID [Concomitant]
     Route: 065

REACTIONS (7)
  - Limb mass [Unknown]
  - Skin tightness [Unknown]
  - Joint swelling [Unknown]
  - Skin discolouration [Unknown]
  - Gait inability [Unknown]
  - Contusion [Unknown]
  - Peripheral swelling [Unknown]
